FAERS Safety Report 16864436 (Version 1)
Quarter: 2019Q3

REPORT INFORMATION
  Report Type: Report from Study
  Country: None (occurrence: FR)
  Receive Date: 20190928
  Receipt Date: 20190928
  Transmission Date: 20191005
  Serious: Yes (Hospitalization)
  Sender: FDA-Public Use
  Company Number: FR-ABBVIE-19S-056-2741810-00

PATIENT
  Age: 82 Year
  Sex: Male

DRUGS (1)
  1. DUODOPA [Suspect]
     Active Substance: CARBIDOPA\LEVODOPA
     Indication: PARKINSON^S DISEASE
     Dosage: MD: 10 ML, CD DAY: 4.1 ML/H, ED? 2.5 ML
     Route: 050
     Dates: start: 20180427

REACTIONS (21)
  - Balance disorder [Unknown]
  - Stoma site extravasation [Unknown]
  - Dyskinesia [Unknown]
  - Cognitive disorder [Unknown]
  - Device dislocation [Unknown]
  - Incorrect route of product administration [Unknown]
  - Device leakage [Unknown]
  - Retinal detachment [Unknown]
  - Stoma site discharge [Unknown]
  - Hallucination [Unknown]
  - Drug ineffective [Unknown]
  - Fall [Recovering/Resolving]
  - Confusional state [Unknown]
  - Constipation [Unknown]
  - Device leakage [Unknown]
  - Device dislocation [Unknown]
  - Fatigue [Unknown]
  - Abdominal pain [Unknown]
  - Stoma site inflammation [Unknown]
  - Stoma site erythema [Unknown]
  - Freezing phenomenon [Unknown]

NARRATIVE: CASE EVENT DATE: 201812
